FAERS Safety Report 23367889 (Version 3)
Quarter: 2024Q1

REPORT INFORMATION
  Report Type: Spontaneous
  Country: IT (occurrence: IT)
  Receive Date: 20240104
  Receipt Date: 20240123
  Transmission Date: 20240409
  Serious: Yes (Death, Life-Threatening, Hospitalization, Other)
  Sender: FDA-Public Use
  Company Number: IT-MYLANLABS-2023M1135255

PATIENT
  Age: 30 Year
  Sex: Female

DRUGS (3)
  1. ZOLPIDEM [Suspect]
     Active Substance: ZOLPIDEM TARTRATE
     Indication: Product used for unknown indication
     Dosage: UNK
     Route: 048
  2. CHLOROFORM [Suspect]
     Active Substance: CHLOROFORM
     Indication: Product used for unknown indication
     Dosage: UNK(THE MAN PRACTICED FORCED EXTERNAL SUFFOCATION BY OCCLUSION)
  3. CHLOROFORM [Suspect]
     Active Substance: CHLOROFORM
     Dosage: UNK(THE MAN PRACTICED FORCED EXTERNAL SUFFOCATION BY OCCLUSION)
     Route: 048

REACTIONS (3)
  - Altered state of consciousness [Fatal]
  - Toxicity to various agents [Fatal]
  - Maternal exposure during pregnancy [Fatal]
